FAERS Safety Report 8138718 (Version 4)
Quarter: 2012Q4

REPORT INFORMATION
  Report Type: 
  Country: US (occurrence: US)
  Receive Date: 20110915
  Receipt Date: 20121110
  Transmission Date: 20130627
  Serious: Yes (Other)
  Sender: FDA-Public Use
  Company Number: US-US-EMD SERONO, INC.-7032956

PATIENT
  Sex: Male

DRUGS (3)
  1. REBIF [Suspect]
     Indication: MULTIPLE SCLEROSIS
     Route: 058
     Dates: start: 20101022
  2. STEROIDS [Concomitant]
     Indication: COLOUR BLINDNESS ACQUIRED
  3. STEROIDS [Concomitant]
     Indication: VISUAL ACUITY REDUCED

REACTIONS (6)
  - Autoimmune disorder [Recovering/Resolving]
  - Balance disorder [Unknown]
  - Nuclear magnetic resonance imaging abnormal [Unknown]
  - Injection site erythema [Unknown]
  - Injection site nodule [Unknown]
  - Injection site pain [Unknown]
